FAERS Safety Report 23435379 (Version 1)
Quarter: 2024Q1

REPORT INFORMATION
  Report Type: Report from Study
  Country: GB (occurrence: None)
  Receive Date: 20240123
  Receipt Date: 20240123
  Transmission Date: 20240410
  Serious: Yes (Other)
  Sender: FDA-Public Use
  Company Number: GB-MDD US Operations-MDD202401-000240

PATIENT
  Sex: Male

DRUGS (15)
  1. APOMORPHINE HYDROCHLORIDE [Suspect]
     Active Substance: APOMORPHINE HYDROCHLORIDE
     Indication: Parkinson^s disease
     Route: 058
     Dates: start: 20220307
  2. APOMORPHINE HYDROCHLORIDE [Suspect]
     Active Substance: APOMORPHINE HYDROCHLORIDE
     Route: 058
     Dates: start: 20220915
  3. ATORVASTATIN [Concomitant]
     Active Substance: ATORVASTATIN
     Dosage: NOT PROVIDED
  4. IVABRADINE [Concomitant]
     Active Substance: IVABRADINE
     Dosage: NOT PROVIDED
  5. FINASTERIDE [Concomitant]
     Active Substance: FINASTERIDE
     Dosage: NOT PROVIDED
  6. CLOPIDOGREL [Concomitant]
     Active Substance: CLOPIDOGREL BISULFATE
     Dosage: NOT PROVIDED
  7. CLONAZEPAM [Concomitant]
     Active Substance: CLONAZEPAM
     Indication: Parkinson^s disease
     Dosage: NOT PROVIDED
  8. MIRTAZAPINE [Concomitant]
     Active Substance: MIRTAZAPINE
     Indication: Parkinson^s disease
     Dosage: NOT PROVIDED
  9. TAMSULOSIN HYDROCHLORIDE [Concomitant]
     Active Substance: TAMSULOSIN HYDROCHLORIDE
     Dosage: NOT PROVIDED
  10. FLUDROCORTISONE [Concomitant]
     Active Substance: FLUDROCORTISONE
     Indication: Parkinson^s disease
     Dosage: NOT PROVIDED
  11. BENSERAZIDE HYDROCHLORIDE\LEVODOPA [Concomitant]
     Active Substance: BENSERAZIDE HYDROCHLORIDE\LEVODOPA
     Indication: Parkinson^s disease
     Dosage: NOT PROVIDED
  12. BENSERAZIDE HYDROCHLORIDE\LEVODOPA [Concomitant]
     Active Substance: BENSERAZIDE HYDROCHLORIDE\LEVODOPA
     Dosage: NOT PROVIDED
  13. BENSERAZIDE HYDROCHLORIDE\LEVODOPA [Concomitant]
     Active Substance: BENSERAZIDE HYDROCHLORIDE\LEVODOPA
     Dosage: NOT PROVIDED
  14. OPICAPONE [Concomitant]
     Active Substance: OPICAPONE
     Indication: Parkinson^s disease
     Dosage: NOT PROVIDED
  15. FLUDROCORTISONE [Concomitant]
     Active Substance: FLUDROCORTISONE
     Dosage: NOT PROVIDED
     Dates: start: 20220805

REACTIONS (3)
  - Injection site necrosis [Unknown]
  - Administration site wound [Unknown]
  - Injection site nodule [Unknown]
